FAERS Safety Report 15412911 (Version 3)
Quarter: 2018Q4

REPORT INFORMATION
  Report Type: Spontaneous
  Country: ES (occurrence: ES)
  Receive Date: 20180921
  Receipt Date: 20181212
  Transmission Date: 20190204
  Serious: Yes (Other)
  Sender: FDA-Public Use
  Company Number: ES-PFIZER INC-2018377789

PATIENT
  Age: 51 Year
  Sex: Female
  Weight: 56 kg

DRUGS (1)
  1. ARTILOG [Suspect]
     Active Substance: CELECOXIB
     Indication: ARTHRITIS
     Dosage: UNK
     Dates: start: 20180720

REACTIONS (1)
  - Extrasystoles [Recovered/Resolved]

NARRATIVE: CASE EVENT DATE: 20180823
